FAERS Safety Report 7849346-5 (Version None)
Quarter: 2011Q4

REPORT INFORMATION
  Report Type: 
  Country: None (occurrence: None)
  Receive Date: 20111021
  Receipt Date: 20111017
  Transmission Date: 20120403
  Serious: Yes (Hospitalization, Other)
  Sender: FDA-Public Use
  Company Number: DKLU1073966

PATIENT
  Age: 20 Month
  Sex: Female

DRUGS (5)
  1. SABRIL [Suspect]
     Indication: INFANTILE SPASMS
     Dosage: 750 MG MILLIGRAM(S), 2 IN 1 D, ORAL
     Route: 048
     Dates: start: 20100201
  2. TOPAMAX [Concomitant]
  3. KEPPRA [Concomitant]
  4. ZANTAC [Concomitant]
  5. VITAMIN B6 [Concomitant]

REACTIONS (1)
  - CONVULSION [None]
